FAERS Safety Report 18430610 (Version 7)
Quarter: 2022Q4

REPORT INFORMATION
  Report Type: Report from Study
  Country: CA (occurrence: CA)
  Receive Date: 20201027
  Receipt Date: 20221031
  Transmission Date: 20230113
  Serious: Yes (Other)
  Sender: FDA-Public Use
  Company Number: PHHY2019CA102990

PATIENT
  Sex: Female

DRUGS (15)
  1. COSENTYX [Suspect]
     Active Substance: SECUKINUMAB
     Indication: Psoriatic arthropathy
     Dosage: 300 MG, QW
     Route: 058
     Dates: start: 20190430
  2. COSENTYX [Suspect]
     Active Substance: SECUKINUMAB
     Dosage: 450 MG, QMO
     Route: 058
     Dates: start: 20190430
  3. COSENTYX [Suspect]
     Active Substance: SECUKINUMAB
     Dosage: 450 MG, QMO
     Route: 058
  4. COSENTYX [Suspect]
     Active Substance: SECUKINUMAB
     Dosage: 300 MG, QMO
     Route: 058
     Dates: start: 2019
  5. COSENTYX [Suspect]
     Active Substance: SECUKINUMAB
     Dosage: 300 MG, QMO
     Route: 058
     Dates: start: 20190728
  6. COSENTYX [Suspect]
     Active Substance: SECUKINUMAB
     Dosage: 300 MG, QMO
     Route: 058
     Dates: start: 2019
  7. COSENTYX [Suspect]
     Active Substance: SECUKINUMAB
     Dosage: 450 MG (300 MG AND 150 MG Q2W)
     Route: 058
     Dates: start: 2019
  8. COSENTYX [Suspect]
     Active Substance: SECUKINUMAB
     Dosage: 450MG (300 MG AND 150 MG) Q2W
     Route: 058
     Dates: start: 20200128
  9. COSENTYX [Suspect]
     Active Substance: SECUKINUMAB
     Dosage: 450 MG
     Route: 058
     Dates: start: 20190822
  10. COSENTYX [Suspect]
     Active Substance: SECUKINUMAB
     Dosage: UNK
     Route: 058
     Dates: start: 20200826
  11. COSENTYX [Suspect]
     Active Substance: SECUKINUMAB
     Dosage: 450 MG
     Route: 058
     Dates: start: 202205
  12. METHOTREXATE [Concomitant]
     Active Substance: METHOTREXATE
     Indication: Product used for unknown indication
     Dosage: UNK
     Route: 065
  13. SULFASALAZINE [Concomitant]
     Active Substance: SULFASALAZINE
     Indication: Product used for unknown indication
     Dosage: UNK
     Route: 065
  14. DILAUDID [Concomitant]
     Active Substance: HYDROMORPHONE HYDROCHLORIDE
     Indication: Product used for unknown indication
     Dosage: UNK UNK, PRN
     Route: 065
  15. AGRAFERON [Concomitant]
     Indication: Product used for unknown indication
     Dosage: UNK
     Route: 065

REACTIONS (15)
  - Haemorrhage [Unknown]
  - Pain in extremity [Unknown]
  - Mobility decreased [Unknown]
  - Nausea [Unknown]
  - Fatigue [Not Recovered/Not Resolved]
  - Asthenia [Not Recovered/Not Resolved]
  - Gait disturbance [Unknown]
  - Pain [Unknown]
  - Arthralgia [Unknown]
  - Fibromyalgia [Unknown]
  - Fine motor skill dysfunction [Unknown]
  - C-reactive protein increased [Unknown]
  - Anaemia [Unknown]
  - Off label use [Unknown]
  - Drug ineffective [Unknown]

NARRATIVE: CASE EVENT DATE: 20190101
